FAERS Safety Report 15428522 (Version 2)
Quarter: 2018Q4

REPORT INFORMATION
  Report Type: Spontaneous
  Country: GB (occurrence: GB)
  Receive Date: 20180926
  Receipt Date: 20181127
  Transmission Date: 20190204
  Serious: Yes (Life-Threatening, Other)
  Sender: FDA-Public Use
  Company Number: GB-BRISTOL-MYERS SQUIBB COMPANY-BMS-2018-086692

PATIENT
  Age: 80 Year

DRUGS (1)
  1. YERVOY [Suspect]
     Active Substance: IPILIMUMAB
     Indication: METASTATIC MALIGNANT MELANOMA
     Dosage: 192 MG, UNK
     Route: 065
     Dates: start: 20150907

REACTIONS (4)
  - Gastrointestinal bacterial overgrowth [Unknown]
  - Guillain-Barre syndrome [Unknown]
  - Autoimmune neutropenia [Unknown]
  - Pneumonia aspiration [Not Recovered/Not Resolved]

NARRATIVE: CASE EVENT DATE: 20160111
